FAERS Safety Report 20503393 (Version 1)
Quarter: 2022Q1

REPORT INFORMATION
  Report Type: Report from Study
  Country: US (occurrence: US)
  Receive Date: 20220222
  Receipt Date: 20220222
  Transmission Date: 20220423
  Serious: Yes (Death, Hospitalization)
  Sender: FDA-Public Use
  Company Number: US-BAUSCH-BL-2020-009958

PATIENT
  Age: 58 Year
  Sex: Male

DRUGS (20)
  1. XIFAXAN [Suspect]
     Active Substance: RIFAXIMIN
     Indication: Hepatic encephalopathy
     Dosage: STARTED 4 TO 5 YEARS AGO
     Route: 048
     Dates: end: 202002
  2. XIFAXAN [Suspect]
     Active Substance: RIFAXIMIN
     Dosage: REDUCED DOSE
     Route: 048
     Dates: start: 202002, end: 2020
  3. XIFAXAN [Suspect]
     Active Substance: RIFAXIMIN
     Route: 048
     Dates: start: 20200322
  4. LYRICA [Concomitant]
     Active Substance: PREGABALIN
     Indication: Product used for unknown indication
     Route: 048
  5. MIDAMOR [Concomitant]
     Active Substance: AMILORIDE HYDROCHLORIDE
     Indication: Product used for unknown indication
     Dosage: 2 TABLETS (10MG) DAILY
     Route: 048
  6. AMOXIL [Concomitant]
     Active Substance: AMOXICILLIN
     Indication: Product used for unknown indication
     Route: 048
  7. VITAMIN B12 [Concomitant]
     Active Substance: CYANOCOBALAMIN
     Indication: Product used for unknown indication
     Dosage: 500 MCG DAILY
     Route: 048
  8. FOLVITE [Concomitant]
     Active Substance: FOLIC ACID
     Indication: Product used for unknown indication
     Dosage: 1 MG DAILY
     Route: 048
  9. LASIX [Concomitant]
     Active Substance: FUROSEMIDE
     Indication: Oedema
     Dosage: 2 TABLETS EVERY MORNING
     Route: 048
  10. HYDROCORTISONE [Concomitant]
     Active Substance: HYDROCORTISONE
     Indication: Rash
     Dosage: APPLY DAILY
     Route: 061
  11. LACTULOSE [Concomitant]
     Active Substance: LACTULOSE
     Indication: Product used for unknown indication
     Dosage: 10G/15ML SOLUTION; 45ML DAILY. 10 G BY MOUTH DAILY,20-25 MG 3-4 TIMES A DAY AS NEEDED
     Route: 048
  12. PAMELOR [Concomitant]
     Active Substance: NORTRIPTYLINE HYDROCHLORIDE
     Indication: Product used for unknown indication
     Dosage: AT BEDTIME
     Route: 048
  13. PRILOSEC [Concomitant]
     Active Substance: OMEPRAZOLE MAGNESIUM
     Indication: Product used for unknown indication
     Route: 048
  14. ZOFRAN ODT [Concomitant]
     Active Substance: ONDANSETRON HYDROCHLORIDE
     Indication: Nausea
     Dosage: DISSOLVE 4 MG EVERY 8 HOURS AS NEEDED. PLACE ON TONGUE TO DISSOLVE.
     Route: 048
  15. ZOFRAN ODT [Concomitant]
     Active Substance: ONDANSETRON HYDROCHLORIDE
     Indication: Vomiting
  16. VITAMIN B1 [Concomitant]
     Active Substance: THIAMINE HYDROCHLORIDE
     Indication: Product used for unknown indication
     Dosage: 1 TABLET DAILY
     Route: 048
  17. GINKGO [Concomitant]
     Active Substance: GINKGO
     Indication: Product used for unknown indication
     Dosage: 400-300-120 MCG-MCG-MG
  18. ERGOCALCIFEROL [Concomitant]
     Active Substance: ERGOCALCIFEROL
     Indication: Product used for unknown indication
     Dosage: ONE CAPSULE BY MOUTH THREE TIMES WEEKLY. 1250 MCG (50,000 UNIT)
     Route: 048
     Dates: start: 20210219
  19. LIDOCAINE;NIFEDIPINE [Concomitant]
     Indication: Product used for unknown indication
     Route: 061
     Dates: start: 20210429
  20. COLYTE WITH FLAVOR PACKS [Concomitant]
     Active Substance: POLYETHYLENE GLYCOL 3350\POTASSIUM CHLORIDE\SODIUM BICARBONATE\SODIUM CHLORIDE\SODIUM SULFATE
     Indication: Bowel preparation
     Dosage: MIX AS DIRECTED ON PACKAGE. DRINK 240 ML (8 OZ) EVERY 10 MINUTES UNTILL GONE. REFRIGERATE ONCE MIXED
     Route: 048
     Dates: start: 20210327

REACTIONS (4)
  - Death [Fatal]
  - Cholelithiasis [Recovered/Resolved]
  - Intentional product use issue [Unknown]
  - Inability to afford medication [Unknown]

NARRATIVE: CASE EVENT DATE: 20200201
